FAERS Safety Report 4810433-7 (Version None)
Quarter: 2005Q4

REPORT INFORMATION
  Report Type: 
  Country: None (occurrence: None)
  Receive Date: 20051024
  Receipt Date: 20051014
  Transmission Date: 20060501
  Serious: Yes (Hospitalization)
  Sender: FDA-Public Use
  Company Number: KII-2005-0019104

PATIENT
  Age: 37 Year
  Sex: Female

DRUGS (3)
  1. OXYCONTIN [Suspect]
     Dosage: ORAL
     Route: 048
  2. BENZODIAPRINE DERIVATIVES () [Suspect]
  3. DILANTIN [Suspect]

REACTIONS (14)
  - ACUTE RESPIRATORY DISTRESS SYNDROME [None]
  - AGITATION [None]
  - BODY TEMPERATURE INCREASED [None]
  - DRUG WITHDRAWAL SYNDROME [None]
  - HYPERTENSION [None]
  - INTENTIONAL OVERDOSE [None]
  - LETHARGY [None]
  - LUNG INFILTRATION [None]
  - PNEUMONIA ASPIRATION [None]
  - RESPIRATORY DEPRESSION [None]
  - RESPIRATORY RATE INCREASED [None]
  - RHONCHI [None]
  - SINUS TACHYCARDIA [None]
  - SNORING [None]
